FAERS Safety Report 6874983-4 (Version None)
Quarter: 2010Q3

REPORT INFORMATION
  Report Type: 
  Country: None (occurrence: None)
  Receive Date: 20100723
  Receipt Date: 20100715
  Transmission Date: 20110219
  Serious: Yes (Other)
  Sender: FDA-Public Use
  Company Number: TCI2010A02803

PATIENT
  Sex: Female

DRUGS (6)
  1. ACTOS [Suspect]
     Dosage: 15 MG (15 MG, 1 D) PER ORAL
     Route: 048
     Dates: start: 20100610, end: 20100621
  2. RABEPRAZOLE SODIUM [Concomitant]
  3. GLIMICRON (GLICLAZIDE) [Concomitant]
  4. LANIRAPID (METILDIGOXIN) [Concomitant]
  5. HALCION [Concomitant]
  6. WARFARIN (WARFARIN POTASSIUM) [Concomitant]

REACTIONS (1)
  - DRUG ERUPTION [None]
